FAERS Safety Report 6553113-2 (Version None)
Quarter: 2010Q1

REPORT INFORMATION
  Report Type: 
  Country: None (occurrence: None)
  Receive Date: 20100127
  Receipt Date: 20090115
  Transmission Date: 20100710
  Serious: No
  Sender: FDA-Public Use
  Company Number: A0764643A

PATIENT
  Sex: Female

DRUGS (1)
  1. IMITREX [Suspect]

REACTIONS (1)
  - ADVERSE DRUG REACTION [None]
